FAERS Safety Report 5916882-8 (Version None)
Quarter: 2008Q3

REPORT INFORMATION
  Report Type: 
  Country: None (occurrence: None)
  Receive Date: 20080909
  Receipt Date: 20080402
  Transmission Date: 20090109
  Serious: Yes (Death)
  Sender: FDA-Public Use
  Company Number: 163-20785-08010150

PATIENT
  Age: 53 Year
  Sex: Female

DRUGS (2)
  1. THALOMID [Suspect]
     Indication: MULTIPLE MYELOMA
     Dosage: 200 MG, 1 IN 1 D, ORAL ; 50-100 MG, DAILY, ORAL
     Route: 048
     Dates: start: 20071011, end: 20071101
  2. THALOMID [Suspect]
     Indication: MULTIPLE MYELOMA
     Dosage: 200 MG, 1 IN 1 D, ORAL ; 50-100 MG, DAILY, ORAL
     Route: 048
     Dates: start: 20071123, end: 20071201

REACTIONS (2)
  - ASTHENIA [None]
  - RENAL FAILURE [None]
